FAERS Safety Report 8319394-X (Version None)
Quarter: 2012Q2

REPORT INFORMATION
  Report Type: 
  Country: None (occurrence: None)
  Receive Date: 20120427
  Receipt Date: 20120423
  Transmission Date: 20120825
  Serious: Yes (Death)
  Sender: FDA-Public Use
  Company Number: PHHY2011US115107

PATIENT
  Age: 81 Year
  Sex: Male

DRUGS (6)
  1. TERAZOSIN HCL [Suspect]
  2. VERAPAMIL [Suspect]
  3. HYDROCODONE BITARTRATE + ACETAMINOPHEN [Suspect]
  4. QUININE SULFATE [Suspect]
  5. DIAZEPAM [Suspect]
  6. HYDRALAZINE HYDROCHLORIDE [Suspect]

REACTIONS (1)
  - COMPLETED SUICIDE [None]
